FAERS Safety Report 14506109 (Version 1)
Quarter: 2018Q1

REPORT INFORMATION
  Report Type: Spontaneous
  Country: US (occurrence: US)
  Receive Date: 20180207
  Receipt Date: 20180207
  Transmission Date: 20180509
  Serious: Yes (Other)
  Sender: FDA-Public Use
  Company Number: None

PATIENT

DRUGS (2)
  1. METFORMIN [Suspect]
     Active Substance: METFORMIN HYDROCHLORIDE
  2. GLIMEPERIDE [Suspect]
     Active Substance: GLIMEPIRIDE

REACTIONS (5)
  - Hypophagia [None]
  - Blood glucose decreased [None]
  - Confusional state [None]
  - Lethargy [None]
  - Unresponsive to stimuli [None]
